FAERS Safety Report 19514311 (Version 1)
Quarter: 2021Q3

REPORT INFORMATION
  Report Type: Spontaneous
  Country: BR (occurrence: BR)
  Receive Date: 20210709
  Receipt Date: 20210709
  Transmission Date: 20211014
  Serious: Yes (Other)
  Sender: FDA-Public Use
  Company Number: BR-OTSUKA-2021_023456

PATIENT
  Sex: Female

DRUGS (2)
  1. REXULTI [Suspect]
     Active Substance: BREXPIPRAZOLE
     Indication: PRODUCT USED FOR UNKNOWN INDICATION
     Dosage: 1 MG
     Route: 065
  2. REXULTI [Suspect]
     Active Substance: BREXPIPRAZOLE
     Dosage: 1.5 MG
     Route: 065

REACTIONS (11)
  - Chills [Unknown]
  - Blood pressure increased [Unknown]
  - Serotonin syndrome [Unknown]
  - Asthenia [Unknown]
  - Discouragement [Unknown]
  - Therapeutic response unexpected [Unknown]
  - Nightmare [Unknown]
  - Hyperhidrosis [Unknown]
  - Heart rate increased [Unknown]
  - Muscle spasms [Unknown]
  - Akathisia [Unknown]
